FAERS Safety Report 7588572-X (Version None)
Quarter: 2011Q3

REPORT INFORMATION
  Report Type: 
  Country: None (occurrence: None)
  Receive Date: 20110705
  Receipt Date: 20110627
  Transmission Date: 20111222
  Serious: Yes (Hospitalization)
  Sender: FDA-Public Use
  Company Number: FR-SANOFI-AVENTIS-2011SA040468

PATIENT
  Age: 35 Year
  Sex: Male

DRUGS (8)
  1. TINZAPARIN SODIUM [Suspect]
     Indication: PULMONARY INFARCTION
     Route: 058
     Dates: start: 20110430, end: 20110501
  2. LOVENOX [Suspect]
     Indication: PULMONARY INFARCTION
     Route: 058
     Dates: start: 20110420, end: 20110429
  3. PREVISCAN [Concomitant]
     Indication: PULMONARY EMBOLISM
     Route: 048
     Dates: start: 20110422
  4. AUGMENTIN '125' [Concomitant]
     Route: 065
     Dates: start: 20110429
  5. LOVENOX [Suspect]
     Indication: PULMONARY EMBOLISM
     Route: 058
     Dates: start: 20110420, end: 20110429
  6. TINZAPARIN SODIUM [Suspect]
     Indication: PULMONARY EMBOLISM
     Route: 058
     Dates: start: 20110430, end: 20110501
  7. XYZAL [Concomitant]
     Route: 065
     Dates: start: 20110429
  8. ACUPAN [Concomitant]
     Route: 065
     Dates: start: 20110429

REACTIONS (1)
  - PRIAPISM [None]
